FAERS Safety Report 14508964 (Version 2)
Quarter: 2018Q1

REPORT INFORMATION
  Report Type: Spontaneous
  Country: BR (occurrence: BR)
  Receive Date: 20180209
  Receipt Date: 20180217
  Transmission Date: 20180509
  Serious: Yes (Hospitalization)
  Sender: FDA-Public Use
  Company Number: BR-ROCHE-2063837

PATIENT
  Sex: Female
  Weight: 50 kg

DRUGS (8)
  1. ONTAX [Concomitant]
     Indication: BREAST CANCER
     Route: 042
  2. ONTAX [Concomitant]
     Route: 042
     Dates: start: 20171009
  3. AVASTIN [Suspect]
     Active Substance: BEVACIZUMAB
     Indication: BREAST CANCER
     Dosage: MOST RECENT INFUSION BEFORE THE HOSPITALIZATION ON 04/SEP/2017 C3D1 AND 11/SEP/2017 C3D8
     Route: 042
  4. AVASTIN [Suspect]
     Active Substance: BEVACIZUMAB
     Dosage: C3D15
     Route: 042
     Dates: start: 20170925
  5. ANTAK [Concomitant]
     Active Substance: RANITIDINE HYDROCHLORIDE
  6. ONDANSETRON [Concomitant]
     Active Substance: ONDANSETRON
  7. FIBERMAIS [Concomitant]
  8. ARADOIS [Concomitant]
     Active Substance: LOSARTAN POTASSIUM

REACTIONS (4)
  - Dehydration [Recovered/Resolved]
  - Neutropenia [Recovered/Resolved]
  - Diarrhoea [Recovered/Resolved]
  - Anaemia [Recovered/Resolved]
